FAERS Safety Report 5611047-1 (Version None)
Quarter: 2008Q1

REPORT INFORMATION
  Report Type: 
  Country: None (occurrence: None)
  Receive Date: 20080201
  Receipt Date: 20071203
  Transmission Date: 20080703
  Serious: No
  Sender: FDA-Public Use
  Company Number: CN-ASTRAZENECA-2007AP07675

PATIENT
  Age: 89 Year
  Sex: Male
  Weight: 41 kg

DRUGS (2)
  1. SEROQUEL [Suspect]
     Indication: VASCULAR DEMENTIA
     Route: 048
     Dates: start: 20070207
  2. DEPAKENE [Concomitant]
     Route: 048

REACTIONS (1)
  - WHITE BLOOD CELL COUNT DECREASED [None]
